FAERS Safety Report 7931785-5 (Version None)
Quarter: 2011Q4

REPORT INFORMATION
  Report Type: 
  Country: None (occurrence: None)
  Receive Date: 20111121
  Receipt Date: 20110712
  Transmission Date: 20120403
  Serious: Yes (Life-Threatening, Hospitalization)
  Sender: FDA-Public Use
  Company Number: JP-BAYER-2011-054202

PATIENT
  Age: 51 Year
  Sex: Male
  Weight: 55 kg

DRUGS (9)
  1. ASPIRIN [Suspect]
     Indication: CEREBRAL INFARCTION
     Dosage: DAILY DOSE 100 MG
     Route: 048
  2. ASPIRIN [Suspect]
     Dosage: DAILY DOSE 100 MG
     Route: 048
     Dates: start: 20101114
  3. FAMOTIDINE [Concomitant]
     Dosage: DAILY DOSE 40 MG
     Route: 048
     Dates: end: 20101111
  4. URSO 250 [Concomitant]
     Dosage: DAILY DOSE 300 MG
     Route: 048
  5. SILECE [Concomitant]
     Dosage: DAILY DOSE 2 MG
     Route: 048
     Dates: end: 20100901
  6. ALDACTONE [Concomitant]
     Dosage: DAILY DOSE 25 MG
     Route: 048
  7. SELBEX [Concomitant]
     Dosage: DAILY DOSE 150 MG
     Route: 048
  8. HALCION [Concomitant]
     Dosage: DAILY DOSE .25 MG
     Route: 048
     Dates: end: 20100901
  9. LASIX [Concomitant]
     Dosage: DAILY DOSE 20 MG
     Route: 048

REACTIONS (5)
  - GALLBLADDER PERFORATION [None]
  - ABDOMINAL PAIN UPPER [None]
  - HAEMOBILIA [None]
  - CHOLELITHIASIS [None]
  - INFLAMMATION [None]
